FAERS Safety Report 5966079-0 (Version None)
Quarter: 2008Q4

REPORT INFORMATION
  Report Type: 
  Country: None (occurrence: None)
  Receive Date: 20081125
  Receipt Date: 20081117
  Transmission Date: 20090506
  Serious: Yes (Other)
  Sender: FDA-Public Use
  Company Number: US-GILEAD-2008-0019105

PATIENT
  Age: 27 Year
  Sex: Female

DRUGS (3)
  1. ATRIPLA [Suspect]
     Route: 048
     Dates: start: 20081009
  2. KALETRA [Suspect]
     Route: 048
     Dates: start: 20081015
  3. COMBIVIR [Suspect]
     Route: 048
     Dates: start: 20081015

REACTIONS (1)
  - STILLBIRTH [None]
